FAERS Safety Report 5203727-7 (Version None)
Quarter: 2007Q1

REPORT INFORMATION
  Report Type: 
  Country: None (occurrence: None)
  Receive Date: 20070105
  Receipt Date: 20061226
  Transmission Date: 20070707
  Serious: Yes (Hospitalization)
  Sender: FDA-Public Use
  Company Number: 2006BI015774

PATIENT
  Age: 49 Year
  Sex: Male

DRUGS (6)
  1. AVONEX [Suspect]
     Indication: MULTIPLE SCLEROSIS
     Dosage: 30 UG QW IM
     Route: 030
     Dates: start: 20040724
  2. BACLOFEN [Concomitant]
  3. PRILOSEC [Concomitant]
  4. OXYBUTYNIN CHLORIDE [Concomitant]
  5. PAXIL [Concomitant]
  6. CALCIUM WITH VITAMIN D [Concomitant]

REACTIONS (1)
  - ROAD TRAFFIC ACCIDENT [None]
